FAERS Safety Report 11296411 (Version 1)
Quarter: 2015Q3

REPORT INFORMATION
  Report Type: Spontaneous
  Country: US (occurrence: US)
  Receive Date: 20150722
  Receipt Date: 20150722
  Transmission Date: 20151125
  Serious: No
  Sender: FDA-Public Use
  Company Number: US-ELI_LILLY_AND_COMPANY-US201002002751

PATIENT
  Age: 74 Year
  Sex: Female

DRUGS (19)
  1. LASIX [Concomitant]
     Active Substance: FUROSEMIDE
     Dosage: 80 MG, EACH MORNING
  2. PEPCID [Concomitant]
     Active Substance: FAMOTIDINE
     Dosage: UNK, DAILY (1/D)
  3. LOPRESSOR [Concomitant]
     Active Substance: METOPROLOL TARTRATE
     Dosage: 75 MG, UNK
  4. PREDNISONE. [Concomitant]
     Active Substance: PREDNISONE
     Dosage: 5 MG, DAILY (1/D)
  5. POTASSIUM [Concomitant]
     Active Substance: POTASSIUM
     Dosage: 20 MEQ, DAILY (1/D)
  6. LANOXIN [Concomitant]
     Active Substance: DIGOXIN
     Dosage: 0.25 MG, DAILY (1/D)
  7. MULTIVITAMIN [Concomitant]
     Active Substance: VITAMINS
     Dosage: UNK, DAILY (1/D)
  8. NORVASC [Concomitant]
     Active Substance: AMLODIPINE BESYLATE
     Dosage: 10 MG, DAILY (1/D)
  9. LASIX [Concomitant]
     Active Substance: FUROSEMIDE
     Dosage: 40 MG, EACH EVENING
  10. LANTUS [Concomitant]
     Active Substance: INSULIN GLARGINE
     Dosage: 44 U, UNK
  11. LEVOTHYROXINE. [Concomitant]
     Active Substance: LEVOTHYROXINE
     Dosage: 50 MG, DAILY (1/D)
  12. HYDROCHLOROTHIAZIDE. [Concomitant]
     Active Substance: HYDROCHLOROTHIAZIDE
     Dosage: 12.5 MG, DAILY (1/D)
  13. NITROBID [Concomitant]
     Dosage: 6.5 MG, 2/D
  14. NOVOLOG [Concomitant]
     Active Substance: INSULIN ASPART
     Dosage: 25 U, UNK
  15. NOVOLOG [Concomitant]
     Active Substance: INSULIN ASPART
     Dosage: 28 U, UNK
  16. NITROSTAT [Concomitant]
     Active Substance: NITROGLYCERIN
     Dosage: 0.4 MG, AS NEEDED
  17. EFFIENT [Suspect]
     Active Substance: PRASUGREL HYDROCHLORIDE
     Dosage: 10 MG, DAILY (1/D)
     Dates: start: 20100128
  18. NOVOLOG [Concomitant]
     Active Substance: INSULIN ASPART
     Dosage: 32 U, UNK
  19. LANTUS [Concomitant]
     Active Substance: INSULIN GLARGINE
     Dosage: 40 U, UNK

REACTIONS (3)
  - Headache [Unknown]
  - Dizziness [Unknown]
  - Blood glucose increased [Unknown]

NARRATIVE: CASE EVENT DATE: 20100202
